FAERS Safety Report 21958495 (Version 2)
Quarter: 2023Q2

REPORT INFORMATION
  Report Type: Report from Study
  Country: US (occurrence: None)
  Receive Date: 20230206
  Receipt Date: 20230511
  Transmission Date: 20230722
  Serious: Yes (Hospitalization, Other)
  Sender: FDA-Public Use
  Company Number: US-ROCHE-3278084

PATIENT
  Weight: 50.4 kg

DRUGS (3)
  1. COBIMETINIB [Suspect]
     Active Substance: COBIMETINIB
     Indication: Bile duct cancer
     Route: 048
     Dates: start: 20230223
  2. ATEZOLIZUMAB [Suspect]
     Active Substance: ATEZOLIZUMAB
     Indication: Bile duct cancer
     Dosage: OVER 30-60 MINUTES ON DAYS 1 AND 15 OF EACH CYCLE
     Route: 041
     Dates: start: 20230223
  3. VARLILUMAB [Suspect]
     Active Substance: VARLILUMAB
     Indication: Bile duct cancer
     Dosage: 90 MINUTES ON DAYS 1 AND 15 OF EACH CYCLE.
     Route: 042
     Dates: start: 20230223

REACTIONS (6)
  - Ascites [Recovered/Resolved]
  - Rash maculo-papular [Unknown]
  - Abdominal pain [Unknown]
  - Diarrhoea [Unknown]
  - Nausea [Unknown]
  - Vomiting [Unknown]

NARRATIVE: CASE EVENT DATE: 20230302
